FAERS Safety Report 9071595 (Version 1)
Quarter: 2013Q1

REPORT INFORMATION
  Report Type: Spontaneous
  Country: US (occurrence: US)
  Receive Date: 20130206
  Receipt Date: 20130206
  Transmission Date: 20140127
  Serious: No
  Sender: FDA-Public Use
  Company Number: US-ALLERGAN-1212956US

PATIENT
  Age: 88 Year
  Sex: Female

DRUGS (9)
  1. RESTASIS? [Suspect]
     Indication: ULCERATIVE KERATITIS
     Dosage: 2 GTT, BID
     Route: 047
     Dates: start: 201208, end: 20120917
  2. AZOPT [Concomitant]
     Indication: GLAUCOMA
     Dosage: 2 GTT, QD
     Route: 047
  3. XALATAN                            /01297301/ [Concomitant]
     Indication: GLAUCOMA
     Dosage: 2 GTT, QD
     Route: 047
  4. METOPROLOL [Concomitant]
     Indication: HYPERTENSION
     Dosage: UNK UNK, QD
     Route: 048
  5. AMLODIPINE [Concomitant]
     Indication: HYPERTENSION
     Dosage: UNK UNK, QD
     Route: 048
  6. SIMVASTATIN [Concomitant]
     Indication: BLOOD CHOLESTEROL INCREASED
     Dosage: UNK UNK, QD
     Route: 048
  7. SYNTHROID [Concomitant]
     Indication: HYPOTHYROIDISM
     Dosage: UNK
     Route: 048
  8. BENAZEPRIL [Concomitant]
     Indication: HYPERTENSION
     Dosage: UNK UNK, QD
     Route: 048
  9. POTASSIUM [Concomitant]
     Indication: PRODUCT USED FOR UNKNOWN INDICATION
     Route: 048

REACTIONS (1)
  - Pain in extremity [Not Recovered/Not Resolved]
